FAERS Safety Report 18269520 (Version 1)
Quarter: 2020Q3

REPORT INFORMATION
  Report Type: Spontaneous
  Country: US (occurrence: US)
  Receive Date: 20200915
  Receipt Date: 20200915
  Transmission Date: 20201103
  Serious: No
  Sender: FDA-Public Use
  Company Number: US-MATRIXX INITIATIVES, INC.-2090753

PATIENT
  Age: 57 Year
  Sex: Male
  Weight: 77.27 kg

DRUGS (3)
  1. ZICAM NOS [Suspect]
     Active Substance: ACETAMINOPHEN\CHLORPHENIRAMINE MALEATE\DEXTROMETHORPHAN HYDROBROMIDE\PHENYLEPHRINE HYDROCHLORIDE OR ACETAMINOPHEN\DEXTROMETHORPHAN HYDROBROMIDE\DOXYLAMINE SUCCINATE\PHENYLEPHRINE HYDROCHLORIDE OR HOMEOPATHICS
     Indication: NASOPHARYNGITIS
     Route: 045
  2. EMERGEN?C [Concomitant]
     Active Substance: VITAMINS
  3. UNSPECIFIED DECONGESTANT [Concomitant]

REACTIONS (2)
  - Ageusia [Recovered/Resolved]
  - Anosmia [Recovered/Resolved]
